FAERS Safety Report 5242229-9 (Version None)
Quarter: 2007Q1

REPORT INFORMATION
  Report Type: 
  Country: None (occurrence: None)
  Receive Date: 20070215
  Receipt Date: 20070215
  Transmission Date: 20070707
  Serious: Yes (Hospitalization)
  Sender: FDA-Public Use
  Company Number: None

PATIENT
  Age: 43 Year
  Sex: Male
  Weight: 64.8644 kg

DRUGS (2)
  1. ATAZANAVIR SULFATE [Suspect]
     Indication: HIV INFECTION
     Dosage: 400 MG DAILY PO
     Route: 048
     Dates: start: 20050707, end: 20070209
  2. FOSAMPRENAVIR [Suspect]
     Indication: HIV INFECTION
     Dosage: ONE BID PO
     Route: 048
     Dates: start: 20051107, end: 20070209

REACTIONS (1)
  - NEPHROLITHIASIS [None]
